FAERS Safety Report 14917926 (Version 1)
Quarter: 2018Q2

REPORT INFORMATION
  Report Type: Spontaneous
  Country: US (occurrence: US)
  Receive Date: 20180501
  Receipt Date: 20180501
  Transmission Date: 20180711
  Serious: Yes (Other)
  Sender: FDA-Public Use
  Company Number: None

PATIENT
  Age: 61 Year
  Sex: Female
  Weight: 90 kg

DRUGS (4)
  1. OMEPRAZOLE. [Concomitant]
     Active Substance: OMEPRAZOLE
  2. WELLBUTRIN [Concomitant]
     Active Substance: BUPROPION HYDROCHLORIDE
  3. CLARITIN [Concomitant]
     Active Substance: LORATADINE
  4. XGEVA [Suspect]
     Active Substance: DENOSUMAB
     Indication: BREAST CANCER METASTATIC
     Dosage: ?          QUANTITY:1 1;OTHER FREQUENCY:MONTHLY;OTHER ROUTE:INJECTION IN ARM?
     Dates: start: 20160301, end: 20171215

REACTIONS (5)
  - Pain in jaw [None]
  - Toothache [None]
  - Mouth ulceration [None]
  - Exostosis [None]
  - Feeding disorder [None]

NARRATIVE: CASE EVENT DATE: 20180401
